FAERS Safety Report 23351731 (Version 1)
Quarter: 2023Q4

REPORT INFORMATION
  Report Type: Spontaneous
  Country: BR (occurrence: BR)
  Receive Date: 20231229
  Receipt Date: 20231229
  Transmission Date: 20240109
  Serious: Yes (Hospitalization, Other)
  Sender: FDA-Public Use
  Company Number: BR-NOVOPROD-1154267

PATIENT
  Sex: Female
  Weight: 94 kg

DRUGS (2)
  1. OZEMPIC [Suspect]
     Active Substance: SEMAGLUTIDE
     Indication: Weight control
     Dosage: 0.25/0.5MG
     Dates: start: 202112, end: 2022
  2. OZEMPIC [Suspect]
     Active Substance: SEMAGLUTIDE
     Dosage: 0.25/0.5MG
     Dates: start: 2022

REACTIONS (11)
  - Road traffic accident [Recovered/Resolved]
  - Multiple fractures [Recovered/Resolved]
  - Fracture [Recovering/Resolving]
  - Gastrointestinal disorder [Recovered/Resolved]
  - Fall [Recovering/Resolving]
  - Oedema peripheral [Not Recovered/Not Resolved]
  - Weight increased [Not Recovered/Not Resolved]
  - Hypercholesterolaemia [Unknown]
  - Nausea [Recovered/Resolved]
  - Hyperglycaemia [Unknown]
  - Product use in unapproved indication [Not Recovered/Not Resolved]

NARRATIVE: CASE EVENT DATE: 20211201
